FAERS Safety Report 18417174 (Version 1)
Quarter: 2020Q4

REPORT INFORMATION
  Report Type: Spontaneous
  Country: US (occurrence: US)
  Receive Date: 20201022
  Receipt Date: 20201022
  Transmission Date: 20210114
  Serious: Yes (Disabling, Other)
  Sender: FDA-Public Use
  Company Number: US-PURDUE-USA-2020-0164201

PATIENT

DRUGS (4)
  1. VICODIN [Suspect]
     Active Substance: ACETAMINOPHEN\HYDROCODONE BITARTRATE
     Indication: ARTHRALGIA
     Dosage: UNK
     Route: 065
  2. PERCOCET                           /00446701/ [Suspect]
     Active Substance: ACETAMINOPHEN\OXYCODONE HYDROCHLORIDE\OXYCODONE TEREPHTHALATE
     Indication: ARTHRALGIA
     Dosage: UNK
     Route: 065
  3. SOMA [Suspect]
     Active Substance: CARISOPRODOL
     Indication: ARTHRALGIA
     Dosage: UNK
     Route: 065
  4. HYDROCODONE BITARTRATE (SIMILAR TO NDA 206627) [Suspect]
     Active Substance: HYDROCODONE BITARTRATE
     Indication: ARTHRALGIA
     Dosage: UNK
     Route: 048

REACTIONS (14)
  - Euphoric mood [Unknown]
  - Anxiety [Not Recovered/Not Resolved]
  - Product prescribing error [Unknown]
  - Drug withdrawal syndrome [Unknown]
  - Gastric disorder [Unknown]
  - Gait disturbance [Not Recovered/Not Resolved]
  - Emotional distress [Unknown]
  - Personality change [Unknown]
  - Drug dependence [Recovered/Resolved]
  - Drug abuse [Recovered/Resolved]
  - Gastrooesophageal reflux disease [Unknown]
  - Depression [Not Recovered/Not Resolved]
  - Disability [Not Recovered/Not Resolved]
  - Pain [Unknown]

NARRATIVE: CASE EVENT DATE: 2015
